FAERS Safety Report 6500163-8 (Version None)
Quarter: 2009Q4

REPORT INFORMATION
  Report Type: 
  Country: None (occurrence: None)
  Receive Date: 20091214
  Receipt Date: 20091214
  Transmission Date: 20100525
  Serious: Yes (Other)
  Sender: FDA-Public Use
  Company Number: None

PATIENT
  Age: 70 Year
  Sex: Female
  Weight: 77.1115 kg

DRUGS (1)
  1. LEVAQUIN [Suspect]
     Indication: LOCALISED INFECTION
     Dosage: 500 MG 1 PER DAY BY MOUTH
     Route: 048
     Dates: start: 20091029, end: 20091107

REACTIONS (5)
  - ABASIA [None]
  - DRUG DOSE OMISSION [None]
  - EAR DISCOMFORT [None]
  - PAIN IN EXTREMITY [None]
  - TINNITUS [None]
